FAERS Safety Report 9632023 (Version 2)
Quarter: 2013Q4

REPORT INFORMATION
  Report Type: Spontaneous
  Country: BR (occurrence: BR)
  Receive Date: 20131018
  Receipt Date: 20131223
  Transmission Date: 20140711
  Serious: Yes (Hospitalization)
  Sender: FDA-Public Use
  Company Number: BR-BAXTER-2013BAX040241

PATIENT
  Age: 11 Year
  Sex: Male

DRUGS (3)
  1. ADVATE [Suspect]
     Indication: HAEMATOMA
     Route: 042
     Dates: start: 20130928, end: 20130928
  2. ADVATE [Suspect]
     Route: 042
     Dates: start: 20130929, end: 20130929
  3. ADVATE [Suspect]
     Route: 042
     Dates: start: 20130930, end: 20130930

REACTIONS (4)
  - Tremor [Recovered/Resolved]
  - Cyanosis [Recovered/Resolved]
  - Pyrexia [Recovered/Resolved]
  - Irritability [Recovered/Resolved]
